FAERS Safety Report 8842940 (Version 4)
Quarter: 2013Q3

REPORT INFORMATION
  Report Type: Report from Study
  Country: JP (occurrence: JP)
  Receive Date: 20121016
  Receipt Date: 20130709
  Transmission Date: 20140515
  Serious: Yes (Disabling, Other)
  Sender: FDA-Public Use
  Company Number: JP-VERTEX PHARMACEUTICAL INC.-AE-2012-008225

PATIENT
  Age: 47 Year
  Sex: Male

DRUGS (15)
  1. VX-950 (TELAPREVIR) [Suspect]
     Indication: CHRONIC HEPATITIS C
     Dosage: 2250 MG, QD
     Route: 048
     Dates: start: 20120406, end: 20120510
  2. VX-950 (TELAPREVIR) [Suspect]
     Dosage: 1500 MG, QD
     Route: 048
     Dates: start: 20120511, end: 20120518
  3. REBETOL [Suspect]
     Indication: CHRONIC HEPATITIS C
     Dosage: 600 MG, QD
     Route: 048
     Dates: start: 20120406, end: 20120501
  4. REBETOL [Suspect]
     Dosage: 400 MG, QD
     Route: 048
     Dates: start: 20120502, end: 20120518
  5. REBETOL [Suspect]
     Dosage: 200 MG, QD
     Route: 048
     Dates: start: 20120518, end: 20120525
  6. PEGINTRON [Suspect]
     Indication: CHRONIC HEPATITIS C
     Dosage: 1.5 ?G/KG, WEEKLY
     Route: 058
     Dates: start: 20120406, end: 20120427
  7. PEGINTRON [Suspect]
     Dosage: 50 ?G, WEEKLY
     Route: 058
     Dates: start: 20120504, end: 20120511
  8. PEGINTRON [Suspect]
     Dosage: 40 ?G, WEEKLY
     Route: 058
     Dates: start: 20120518, end: 20120601
  9. PEGINTRON [Suspect]
     Dosage: 40 ?G, WEEKLY
     Route: 058
     Dates: start: 20120608, end: 20120629
  10. PEGINTRON [Suspect]
     Dosage: 30 ?G, WEEKLY
     Route: 058
     Dates: start: 20120706, end: 20120713
  11. PEGINTRON [Suspect]
     Dosage: 30 ?G, WEEKLY
     Route: 058
     Dates: start: 20120727, end: 20120727
  12. LOXOPROFEN [Suspect]
     Indication: PROPHYLAXIS
     Dosage: 60 MG, PRN
     Route: 048
     Dates: start: 20120406
  13. LANTUS [Concomitant]
     Dosage: 13 DF, QD
     Route: 058
     Dates: start: 20120222
  14. LANTUS [Concomitant]
     Dosage: 10 DF, QD
     Route: 058
     Dates: start: 20120519
  15. HUMALOG [Concomitant]
     Dosage: 38 DF, QD
     Route: 058
     Dates: start: 20120222

REACTIONS (2)
  - Retinopathy [Recovered/Resolved]
  - Anaemia [Recovered/Resolved]
